FAERS Safety Report 12756128 (Version 2)
Quarter: 2016Q4

REPORT INFORMATION
  Report Type: Report from Study
  Country: None (occurrence: CH)
  Receive Date: 20160916
  Receipt Date: 20161008
  Transmission Date: 20170207
  Serious: Yes (Hospitalization)
  Sender: FDA-Public Use
  Company Number: CH-ABBVIE-16K-151-1724357-00

PATIENT
  Age: 77 Year
  Sex: Female

DRUGS (3)
  1. DUODOPA [Suspect]
     Active Substance: CARBIDOPA\LEVODOPA
     Dosage: MORNING DOSE 2.7ML, CONTINUOUS RATE DAY 1.7ML/H
     Route: 050
     Dates: start: 2016, end: 2016
  2. DUODOPA [Suspect]
     Active Substance: CARBIDOPA\LEVODOPA
     Indication: PARKINSON^S DISEASE
     Dosage: MD: 3.2ML, CRD: 1.5ML/H, ED: 0.5ML, 16H THERAPY
     Route: 050
     Dates: start: 20160825, end: 2016
  3. EXELON [Suspect]
     Active Substance: RIVASTIGMINE TARTRATE
     Indication: PRODUCT USED FOR UNKNOWN INDICATION
     Route: 065
     Dates: start: 20160909

REACTIONS (10)
  - Unintentional medical device removal [Recovered/Resolved]
  - Chemical poisoning [Unknown]
  - Confusional state [Unknown]
  - Incorrect route of drug administration [Recovered/Resolved]
  - Tension [Unknown]
  - Dyskinesia [Recovered/Resolved]
  - Aphasia [Unknown]
  - Device alarm issue [Recovered/Resolved]
  - Depressed level of consciousness [Unknown]
  - Anxiety [Unknown]

NARRATIVE: CASE EVENT DATE: 2016
